FAERS Safety Report 9780537 (Version 3)
Quarter: 2014Q1

REPORT INFORMATION
  Report Type: Report from Study
  Country: FR (occurrence: FR)
  Receive Date: 20131224
  Receipt Date: 20140203
  Transmission Date: 20141002
  Serious: Yes (Hospitalization, Other)
  Sender: FDA-Public Use
  Company Number: FR-ROCHE-1160657

PATIENT
  Age: 58 Year
  Sex: Female

DRUGS (13)
  1. RITUXIMAB [Suspect]
     Indication: RHEUMATOID ARTHRITIS
     Route: 042
     Dates: start: 20061006, end: 20061020
  2. TOCILIZUMAB [Suspect]
     Indication: RHEUMATOID ARTHRITIS
     Route: 042
  3. CORTANCYL [Concomitant]
  4. ABATACEPT [Concomitant]
  5. ARAVA [Concomitant]
  6. OXYCONTIN [Concomitant]
  7. OXYNORM [Concomitant]
  8. LYRICA [Concomitant]
  9. VITAMIN B12 [Concomitant]
  10. FOSAVANCE [Concomitant]
  11. OROCAL [Concomitant]
  12. MYOLASTAN [Concomitant]
  13. METHOTREXATE [Concomitant]

REACTIONS (22)
  - Infection [Unknown]
  - Escherichia sepsis [Recovered/Resolved]
  - Intervertebral disc protrusion [Unknown]
  - Lung disorder [Unknown]
  - Embolism [Unknown]
  - Intervertebral disc compression [Unknown]
  - Influenza like illness [Recovered/Resolved]
  - Renal failure chronic [Not Recovered/Not Resolved]
  - Nasopharyngitis [Recovered/Resolved]
  - Normochromic normocytic anaemia [Recovered/Resolved]
  - Sciatica [Not Recovered/Not Resolved]
  - Hypogammaglobulinaemia [Not Recovered/Not Resolved]
  - Gastric ulcer [Not Recovered/Not Resolved]
  - Neutropenia [Not Recovered/Not Resolved]
  - Device dislocation [Unknown]
  - Vertebroplasty [Unknown]
  - Depression [Not Recovered/Not Resolved]
  - Paradoxical drug reaction [Unknown]
  - Shoulder arthroplasty [Unknown]
  - Cementoplasty [Unknown]
  - Cystitis [Recovered/Resolved]
  - Joint arthroplasty [Recovering/Resolving]
